FAERS Safety Report 19662011 (Version 2)
Quarter: 2022Q1

REPORT INFORMATION
  Report Type: Spontaneous
  Country: CA (occurrence: CA)
  Receive Date: 20210805
  Receipt Date: 20220124
  Transmission Date: 20220423
  Serious: Yes (Life-Threatening, Hospitalization, Other)
  Sender: FDA-Public Use
  Company Number: CA-SA-SAC20210729000927

PATIENT
  Sex: Female

DRUGS (18)
  1. LEFLUNOMIDE [Suspect]
     Active Substance: LEFLUNOMIDE
     Indication: Product used for unknown indication
     Dosage: 10 MG, QD
     Route: 048
  2. METHOTREXATE [Suspect]
     Active Substance: METHOTREXATE
     Indication: Rheumatoid arthritis
     Dosage: 1 DF, QW
     Route: 030
     Dates: start: 1992
  3. MYOCHRYSINE [Suspect]
     Active Substance: GOLD SODIUM THIOMALATE
     Indication: Product used for unknown indication
     Dosage: 50 MG
     Route: 030
     Dates: start: 1992, end: 1996
  4. DICLOFENAC [Suspect]
     Active Substance: DICLOFENAC
     Indication: Product used for unknown indication
     Dosage: 100 MG, QD
     Route: 065
     Dates: start: 1994, end: 2000
  5. ACTEMRA [Suspect]
     Active Substance: TOCILIZUMAB
     Indication: Product used for unknown indication
     Dosage: UNK
     Route: 065
  6. HUMIRA [Suspect]
     Active Substance: ADALIMUMAB
     Indication: Product used for unknown indication
     Dosage: UNK
     Route: 058
  7. ENBREL [Suspect]
     Active Substance: ETANERCEPT
     Indication: Rheumatoid arthritis
     Dosage: UNK
     Route: 065
     Dates: start: 1992
  8. RINVOQ [Suspect]
     Active Substance: UPADACITINIB
     Indication: Product used for unknown indication
     Dosage: UNK
     Route: 048
     Dates: end: 20200909
  9. MELOXICAM [Concomitant]
     Active Substance: MELOXICAM
     Indication: Product used for unknown indication
     Dosage: 15 MG, QD
     Route: 065
  10. AZATHIOPRINE [Concomitant]
     Active Substance: AZATHIOPRINE
     Indication: Product used for unknown indication
     Dosage: 1 DF, QD
     Route: 065
  11. AZATHIOPRINE [Concomitant]
     Active Substance: AZATHIOPRINE
     Dosage: 100-125 MG
     Dates: start: 1992
  12. HYDROXYCHLOROQUINE [Concomitant]
     Active Substance: HYDROXYCHLOROQUINE
     Indication: Product used for unknown indication
     Dosage: 200 MG, BID
     Route: 048
     Dates: start: 1991
  13. NAPROXEN [Concomitant]
     Active Substance: NAPROXEN
     Indication: Product used for unknown indication
     Dosage: UNK
     Route: 065
     Dates: start: 2001
  14. PLAQUENIL [Concomitant]
     Active Substance: HYDROXYCHLOROQUINE SULFATE
     Indication: Product used for unknown indication
     Dosage: UNK
     Route: 065
  15. PREDNISONE [Concomitant]
     Active Substance: PREDNISONE
     Indication: Rheumatoid arthritis
     Dosage: 12.5 MG, QD
     Route: 048
  16. PREDNISONE [Concomitant]
     Active Substance: PREDNISONE
     Dosage: 5-10 MG QD
     Dates: end: 2016
  17. VIOXX [Concomitant]
     Active Substance: ROFECOXIB
     Indication: Product used for unknown indication
     Dosage: 25 MG, QD
     Route: 065
     Dates: start: 2000
  18. XELJANZ [Concomitant]
     Active Substance: TOFACITINIB CITRATE
     Indication: Rheumatoid arthritis
     Dosage: 5 MG, BID
     Route: 048
     Dates: start: 20190308, end: 202007

REACTIONS (26)
  - Abscess [Recovered/Resolved]
  - Drug intolerance [Recovered/Resolved]
  - Joint swelling [Unknown]
  - Joint swelling [Recovered/Resolved]
  - Arthralgia [Unknown]
  - Hepatic fibrosis [Recovered/Resolved]
  - Illness [Unknown]
  - Hepatic fibrosis [Unknown]
  - Ascites [Unknown]
  - Urinary tract infection [Recovered/Resolved]
  - Infection [Unknown]
  - Abdominal discomfort [Unknown]
  - Sepsis [Recovered/Resolved]
  - Interstitial lung disease [Recovered/Resolved]
  - Spinal operation [Unknown]
  - Surgery [Unknown]
  - Intra-abdominal fluid collection [Recovered/Resolved]
  - Spinal cord infection [Recovered/Resolved]
  - Post procedural complication [Recovered/Resolved]
  - Arthralgia [Recovered/Resolved]
  - Localised infection [Recovered/Resolved]
  - Abdominal discomfort [Recovered/Resolved]
  - Malaise [Recovered/Resolved]
  - Surgery [Recovered/Resolved]
  - Drug ineffective [Unknown]
  - Drug ineffective [Unknown]
